FAERS Safety Report 23851442 (Version 1)
Quarter: 2024Q2

REPORT INFORMATION
  Report Type: Spontaneous
  Country: US (occurrence: US)
  Receive Date: 20240514
  Receipt Date: 20240514
  Transmission Date: 20240716
  Serious: No
  Sender: FDA-Public Use
  Company Number: US-BIOGEN-2022BI01091450

PATIENT
  Sex: Female

DRUGS (2)
  1. TYSABRI [Suspect]
     Active Substance: NATALIZUMAB
     Indication: Multiple sclerosis
     Route: 050
  2. NALTREXONE [Concomitant]
     Active Substance: NALTREXONE
     Route: 050

REACTIONS (3)
  - Incontinence [Not Recovered/Not Resolved]
  - Gait inability [Unknown]
  - Akinesia [Unknown]
